FAERS Safety Report 9347478 (Version 1)
Quarter: 2013Q2

REPORT INFORMATION
  Report Type: Report from Study
  Country: FR (occurrence: FR)
  Receive Date: 20130614
  Receipt Date: 20130614
  Transmission Date: 20140414
  Serious: Yes (Death, Other)
  Sender: FDA-Public Use
  Company Number: FR-ROCHE-1233489

PATIENT
  Age: 76 Year
  Sex: Female

DRUGS (45)
  1. RITUXIMAB [Suspect]
     Indication: B-CELL LYMPHOMA
     Route: 065
     Dates: start: 20070319
  2. RITUXIMAB [Suspect]
     Route: 065
     Dates: start: 20070416
  3. RITUXIMAB [Suspect]
     Route: 065
     Dates: start: 20070730
  4. RITUXIMAB [Suspect]
     Route: 065
     Dates: start: 20071029
  5. RITUXIMAB [Suspect]
     Route: 065
     Dates: start: 20071226
  6. RITUXIMAB [Suspect]
     Route: 065
     Dates: start: 20080116
  7. RITUXIMAB [Suspect]
     Route: 065
     Dates: start: 20080217
  8. RITUXIMAB [Suspect]
     Route: 065
     Dates: start: 20080229
  9. RITUXIMAB [Suspect]
     Route: 065
     Dates: start: 20080321
  10. RITUXIMAB [Suspect]
     Route: 065
     Dates: start: 20080411
  11. RITUXIMAB [Suspect]
     Route: 065
     Dates: start: 20080430
  12. RITUXIMAB [Suspect]
     Route: 065
     Dates: start: 20080521
  13. RITUXIMAB [Suspect]
     Route: 065
     Dates: start: 2006
  14. FLUDARABINE PHOSPHATE [Concomitant]
     Indication: B-CELL LYMPHOMA
     Route: 065
     Dates: start: 20070319
  15. FLUDARABINE PHOSPHATE [Concomitant]
     Route: 065
     Dates: start: 20070416
  16. FLUDARABINE PHOSPHATE [Concomitant]
     Route: 065
     Dates: start: 20070514
  17. CYCLOPHOSPHAMIDE [Concomitant]
     Indication: B-CELL LYMPHOMA
     Route: 065
     Dates: start: 20070319
  18. CYCLOPHOSPHAMIDE [Concomitant]
     Route: 065
     Dates: start: 20070416
  19. CYCLOPHOSPHAMIDE [Concomitant]
     Route: 065
     Dates: start: 20070514
  20. CYCLOPHOSPHAMIDE [Concomitant]
     Route: 065
     Dates: start: 20071226
  21. CYCLOPHOSPHAMIDE [Concomitant]
     Route: 065
     Dates: start: 20080116
  22. CYCLOPHOSPHAMIDE [Concomitant]
     Route: 065
     Dates: start: 20080207
  23. CYCLOPHOSPHAMIDE [Concomitant]
     Route: 065
     Dates: start: 20080229
  24. CYCLOPHOSPHAMIDE [Concomitant]
     Route: 065
     Dates: start: 20080321
  25. CYCLOPHOSPHAMIDE [Concomitant]
     Route: 065
     Dates: start: 20080411
  26. CYCLOPHOSPHAMIDE [Concomitant]
     Route: 065
     Dates: start: 20080430
  27. CYCLOPHOSPHAMIDE [Concomitant]
     Route: 065
     Dates: start: 20080521
  28. VINCRISTINE [Concomitant]
     Route: 065
     Dates: start: 20071226
  29. VINCRISTINE [Concomitant]
     Route: 065
     Dates: start: 20080116
  30. VINCRISTINE [Concomitant]
     Route: 065
     Dates: start: 20080207
  31. VINCRISTINE [Concomitant]
     Route: 065
     Dates: start: 20080229
  32. VINCRISTINE [Concomitant]
     Route: 065
     Dates: start: 20080321
  33. VINCRISTINE [Concomitant]
     Route: 065
     Dates: start: 20080411
  34. VINCRISTINE [Concomitant]
     Route: 065
     Dates: start: 20080430
  35. VINCRISTINE [Concomitant]
     Route: 065
     Dates: start: 20080521
  36. METHYLPREDNISOLONE [Concomitant]
     Route: 065
     Dates: start: 20071226
  37. METHYLPREDNISOLONE [Concomitant]
     Route: 065
     Dates: start: 20080116
  38. METHYLPREDNISOLONE [Concomitant]
     Route: 065
     Dates: start: 20080207
  39. METHYLPREDNISOLONE [Concomitant]
     Route: 065
     Dates: start: 20080229
  40. METHYLPREDNISOLONE [Concomitant]
     Route: 065
     Dates: start: 20080321
  41. METHYLPREDNISOLONE [Concomitant]
     Route: 065
     Dates: start: 20080411
  42. METHYLPREDNISOLONE [Concomitant]
     Route: 065
     Dates: start: 20080430
  43. METHYLPREDNISOLONE [Concomitant]
     Route: 065
     Dates: start: 20080521
  44. BACTRIM [Concomitant]
     Route: 065
  45. ZELITREX [Concomitant]

REACTIONS (4)
  - General physical health deterioration [Fatal]
  - Neutropenia [Unknown]
  - Vomiting [Unknown]
  - Pancytopenia [Unknown]
